FAERS Safety Report 8799896 (Version 2)
Quarter: 2013Q4

REPORT INFORMATION
  Report Type: Spontaneous
  Country: US (occurrence: US)
  Receive Date: 20120919
  Receipt Date: 20131101
  Transmission Date: 20140711
  Serious: Yes (Other)
  Sender: FDA-Public Use
  Company Number: US-009507513-1209USA003696

PATIENT
  Sex: Female

DRUGS (4)
  1. ISENTRESS [Suspect]
     Dosage: 800 MG, QD
     Route: 064
  2. RETROVIR [Suspect]
     Dosage: 2 MGKH, ONCE
     Route: 064
  3. RETROVIR [Suspect]
     Dosage: 1 MGKH, ONCE
     Route: 064
  4. TRUVADA [Suspect]
     Dosage: 500 MG, QD
     Route: 064

REACTIONS (1)
  - Foetal exposure during pregnancy [Unknown]
